FAERS Safety Report 9185086 (Version 1)
Quarter: 2012Q4

REPORT INFORMATION
  Report Type: 
  Country: BR (occurrence: US)
  Receive Date: 20121101
  Receipt Date: 20121101
  Transmission Date: 20130627
  Serious: Yes (Hospitalization, Other)
  Sender: FDA-Public Use
  Company Number: US-ELI_LILLY_AND_COMPANY-US201210007817

PATIENT
  Age: 57 Year
  Sex: Female

DRUGS (4)
  1. GEMCITABINE HYDROCHLORIDE [Suspect]
     Indication: BREAST CANCER
     Dosage: 1250 mg/m2, other
     Dates: start: 20101027, end: 20101124
  2. ARIMIDEX [Concomitant]
     Dosage: 1 mg, qd
     Dates: start: 200811, end: 200906
  3. ZOLEDRONIC ACID [Concomitant]
     Dosage: 4 mg, monthly (1/M)
     Dates: start: 200811
  4. XELODA [Concomitant]
     Dosage: UNK
     Dates: start: 200906

REACTIONS (7)
  - Posterior reversible encephalopathy syndrome [Recovered/Resolved]
  - Thrombocytopenia [Recovering/Resolving]
  - Thrombosis [Unknown]
  - Hypertension [Recovered/Resolved]
  - Splenic vein thrombosis [None]
  - Renal vein thrombosis [None]
  - Arterial thrombosis [None]
